FAERS Safety Report 9419048 (Version 1)
Quarter: 2013Q3

REPORT INFORMATION
  Report Type: Report from Study
  Country: US (occurrence: US)
  Receive Date: 20130725
  Receipt Date: 20130725
  Transmission Date: 20140515
  Serious: Yes (Other)
  Sender: FDA-Public Use
  Company Number: PHEH2013US015629

PATIENT
  Sex: Female

DRUGS (2)
  1. AFINITOR [Suspect]
     Route: 048
  2. SANDOSTATIN LAR [Concomitant]
     Dosage: 30 MG

REACTIONS (2)
  - Uterine leiomyoma [Unknown]
  - Diarrhoea [Unknown]
